FAERS Safety Report 6265459-6 (Version None)
Quarter: 2009Q3

REPORT INFORMATION
  Report Type: 
  Country: None (occurrence: None)
  Receive Date: 20090713
  Receipt Date: 20090707
  Transmission Date: 20100115
  Serious: Yes (Death, Hospitalization)
  Sender: FDA-Public Use
  Company Number: US-GILEAD-2009-0022903

PATIENT
  Sex: Female
  Weight: 99.426 kg

DRUGS (18)
  1. LETAIRIS [Suspect]
     Indication: PULMONARY ARTERIAL HYPERTENSION
     Route: 048
     Dates: start: 20080201
  2. LETAIRIS [Suspect]
     Route: 048
     Dates: start: 20080101
  3. REVATIO [Concomitant]
  4. NORVASC [Concomitant]
  5. LISINOPRIL [Concomitant]
  6. FLUTICASONE [Concomitant]
  7. COMBIVENT [Concomitant]
  8. SPIRIVA [Concomitant]
  9. METHOTREXATE [Concomitant]
  10. PLAQUENIL [Concomitant]
  11. PRANDIN [Concomitant]
  12. FOLIC ACID [Concomitant]
  13. IBUPROFEN [Concomitant]
  14. DARVOCET [Concomitant]
  15. CALTRATE [Concomitant]
  16. VITAMIN B-12 [Concomitant]
  17. VITAMIN D [Concomitant]
  18. LOVAZA [Concomitant]

REACTIONS (3)
  - DISEASE PROGRESSION [None]
  - DYSPNOEA [None]
  - LUNG DISORDER [None]
